FAERS Safety Report 7982164-6 (Version None)
Quarter: 2011Q4

REPORT INFORMATION
  Report Type: 
  Country: None (occurrence: None)
  Receive Date: 20111212
  Receipt Date: 20111205
  Transmission Date: 20120403
  Serious: Yes (Hospitalization, Other)
  Sender: FDA-Public Use
  Company Number: 2006-144661-NL

PATIENT
  Age: 25 Year
  Sex: Female
  Weight: 83.9154 kg

DRUGS (10)
  1. AMOXICILLIN [Concomitant]
  2. PROPRANOLOL [Concomitant]
  3. TYLENOL W/ CODEINE NO. 3 [Concomitant]
  4. AZITHROMYCIN [Concomitant]
  5. CIPRODEX [Concomitant]
  6. NEURONTIN [Concomitant]
  7. NOREL SR [Concomitant]
  8. NUVARING [Suspect]
     Indication: CONTRACEPTION
     Dosage: QM;VAG
     Route: 067
     Dates: start: 20060126, end: 20060525
  9. COUMADIN [Suspect]
     Indication: CEREBROVASCULAR ACCIDENT
     Dates: start: 20060501
  10. APAP W/ CODEINE [Concomitant]

REACTIONS (36)
  - CARDIOVASCULAR DISORDER [None]
  - ANGINA PECTORIS [None]
  - CALCULUS URETERIC [None]
  - BACK PAIN [None]
  - BACK INJURY [None]
  - CEREBROVASCULAR ACCIDENT [None]
  - ARRHYTHMIA [None]
  - MIGRAINE [None]
  - HYPOACUSIS [None]
  - SUBARACHNOID HAEMORRHAGE [None]
  - DEPRESSION [None]
  - CONDITION AGGRAVATED [None]
  - DEEP VEIN THROMBOSIS [None]
  - PERIPHERAL VASCULAR DISORDER [None]
  - NEPHROLITHIASIS [None]
  - HYPERTENSION [None]
  - CYSTITIS [None]
  - URINARY TRACT INFECTION [None]
  - NAUSEA [None]
  - TYMPANIC MEMBRANE DISORDER [None]
  - HAEMORRHAGE [None]
  - TRANSVERSE SINUS THROMBOSIS [None]
  - MUSCULOSKELETAL CHEST PAIN [None]
  - MENORRHAGIA [None]
  - CEREBRAL THROMBOSIS [None]
  - HYPERCOAGULATION [None]
  - SCLERAL HAEMORRHAGE [None]
  - BLOOD CHOLESTEROL INCREASED [None]
  - OVARIAN CYST [None]
  - PHARYNGITIS [None]
  - EAR INFECTION [None]
  - HAEMATURIA [None]
  - COSTOCHONDRITIS [None]
  - AMENORRHOEA [None]
  - HAEMORRHAGIC TRANSFORMATION STROKE [None]
  - CYSTITIS HAEMORRHAGIC [None]
